FAERS Safety Report 4781568-2 (Version None)
Quarter: 2005Q3

REPORT INFORMATION
  Report Type: 
  Country: None (occurrence: None)
  Receive Date: 20050927
  Receipt Date: 20050914
  Transmission Date: 20060218
  Serious: Yes (Hospitalization)
  Sender: FDA-Public Use
  Company Number: 02100-JPN-05-0387

PATIENT
  Age: 73 Year
  Sex: Male

DRUGS (8)
  1. CILOSTAZOL [Suspect]
     Indication: ATHEROSCLEROSIS OBLITERANS
     Dosage: 150 MG, ORAL
     Route: 048
     Dates: start: 20050715, end: 20050717
  2. BERAPROST SODIUM [Suspect]
     Dosage: 120 MCG; ORAL
     Route: 048
     Dates: start: 20050715, end: 20050717
  3. BENIDIPINE HYDROCHLORIDE [Concomitant]
  4. TEMOCAPRIL HYDROCHLORIDE [Concomitant]
  5. ALPROSTADIL [Concomitant]
  6. ARGATROBAN [Concomitant]
  7. LOW CALORIC DIET (1600 KCALL) [Concomitant]
  8. LOW SODIUM DIET (NACL 7 G) [Concomitant]

REACTIONS (2)
  - CARDIOVASCULAR DISORDER [None]
  - RENAL FAILURE [None]
